FAERS Safety Report 19876552 (Version 1)
Quarter: 2021Q3

REPORT INFORMATION
  Report Type: Other
  Country: GB (occurrence: GB)
  Receive Date: 20210924
  Receipt Date: 20210924
  Transmission Date: 20211014
  Serious: No
  Sender: FDA-Public Use
  Company Number: GB-LUPIN PHARMACEUTICALS INC.-2021-14501

PATIENT
  Age: 49 Year
  Sex: Male

DRUGS (3)
  1. EMTRICITABINE\TENOFOVIR DISOPROXIL FUMARATE [Suspect]
     Active Substance: EMTRICITABINE\TENOFOVIR DISOPROXIL FUMARATE
     Indication: ILL-DEFINED DISORDER
     Dosage: UNK (200MG/245MG ) ONCE A DAY
     Route: 065
     Dates: start: 202005
  2. DARUNAVIR [Concomitant]
     Active Substance: DARUNAVIR
     Indication: ILL-DEFINED DISORDER
     Dosage: 600 MILLIGRAM
     Route: 065
  3. RITONAVIR. [Concomitant]
     Active Substance: RITONAVIR
     Indication: ILL-DEFINED DISORDER
     Dosage: 100 MILLIGRAM
     Route: 065

REACTIONS (2)
  - Insomnia [Unknown]
  - Nightmare [Unknown]
